FAERS Safety Report 20699892 (Version 1)
Quarter: 2022Q2

REPORT INFORMATION
  Report Type: Report from Study
  Country: BR (occurrence: BR)
  Receive Date: 20220412
  Receipt Date: 20220412
  Transmission Date: 20220721
  Serious: Yes (Other)
  Sender: FDA-Public Use
  Company Number: BR-TAKEDA-2021TUS068833

PATIENT
  Sex: Male

DRUGS (1)
  1. ANTI-INHIBITOR COAGULANT COMPLEX [Suspect]
     Active Substance: ANTI-INHIBITOR COAGULANT COMPLEX
     Indication: Factor VIII deficiency
     Dosage: UNK
     Route: 042

REACTIONS (1)
  - Factor VIII inhibition [Unknown]
